FAERS Safety Report 18122752 (Version 1)
Quarter: 2020Q3

REPORT INFORMATION
  Report Type: Spontaneous
  Country: US (occurrence: US)
  Receive Date: 20200806
  Receipt Date: 20200806
  Transmission Date: 20201103
  Serious: No
  Sender: FDA-Public Use
  Company Number: None

PATIENT
  Age: 65 Year
  Sex: Female
  Weight: 71 kg

DRUGS (18)
  1. VIT D [Concomitant]
     Active Substance: VITAMIN D NOS
  2. EPIPEN [Concomitant]
     Active Substance: EPINEPHRINE
  3. ZYPREXA [Concomitant]
     Active Substance: OLANZAPINE
  4. BIOTIN [Concomitant]
     Active Substance: BIOTIN
  5. MODAFINIL. [Concomitant]
     Active Substance: MODAFINIL
  6. IRBESARTAN. [Concomitant]
     Active Substance: IRBESARTAN
  7. HYDROCHLOROTHIAZIDE. [Concomitant]
     Active Substance: HYDROCHLOROTHIAZIDE
  8. PLAVIX [Concomitant]
     Active Substance: CLOPIDOGREL BISULFATE
  9. VITAMIN C [Concomitant]
     Active Substance: ASCORBIC ACID
  10. CITALOPRAM [Concomitant]
     Active Substance: CITALOPRAM HYDROBROMIDE
  11. CAPECITABINE. [Suspect]
     Active Substance: CAPECITABINE
     Indication: PRODUCT USED FOR UNKNOWN INDICATION
     Route: 048
     Dates: start: 20170327, end: 20200806
  12. GLYCOLAX [Concomitant]
     Active Substance: POLYETHYLENE GLYCOL 3350
  13. ATORVASTATIN [Concomitant]
     Active Substance: ATORVASTATIN
  14. LATANOPROST. [Concomitant]
     Active Substance: LATANOPROST
  15. DOCUSATE SODIUM. [Concomitant]
     Active Substance: DOCUSATE SODIUM
  16. MORPHINE [Concomitant]
     Active Substance: MORPHINE
  17. CALCIUM 500/ VIT D [Concomitant]
  18. ENOXAPARIN [Concomitant]
     Active Substance: ENOXAPARIN

REACTIONS (1)
  - Disease progression [None]

NARRATIVE: CASE EVENT DATE: 20200806
